FAERS Safety Report 4510457-3 (Version None)
Quarter: 2004Q4

REPORT INFORMATION
  Report Type: 
  Country: None (occurrence: None)
  Receive Date: 20041124
  Receipt Date: 20041102
  Transmission Date: 20050328
  Serious: Yes (Other)
  Sender: FDA-Public Use
  Company Number: JP-GLAXOSMITHKLINE-B0350589A

PATIENT
  Sex: Female
  Weight: 2.6 kg

DRUGS (1)
  1. PAXIL [Suspect]
     Dosage: 20MG PER DAY
     Dates: end: 20041023

REACTIONS (2)
  - ASTHENIA [None]
  - DRUG EXPOSURE DURING PREGNANCY [None]
